FAERS Safety Report 9758728 (Version 2)
Quarter: 2014Q2

REPORT INFORMATION
  Report Type: Spontaneous
  Country: US (occurrence: None)
  Receive Date: 20131216
  Receipt Date: 20140514
  Transmission Date: 20141212
  Serious: Yes (Hospitalization)
  Sender: FDA-Public Use
  Company Number: 058022

PATIENT
  Age: 36 Year
  Sex: Female

DRUGS (1)
  1. CIMZIA [Suspect]
     Indication: CROHN^S DISEASE
     Dosage: (200 MG 1X/2 WEEKS)
     Route: 058
     Dates: start: 20120507

REACTIONS (4)
  - Fistula [None]
  - Intestinal obstruction [None]
  - Pyrexia [None]
  - Nasal congestion [None]
